FAERS Safety Report 8385907-5 (Version None)
Quarter: 2012Q2

REPORT INFORMATION
  Report Type: 
  Country: None (occurrence: None)
  Receive Date: 20120525
  Receipt Date: 20120517
  Transmission Date: 20120825
  Serious: Yes (Hospitalization, Other)
  Sender: FDA-Public Use
  Company Number: GB-MPIJNJ-2012-00673

PATIENT

DRUGS (9)
  1. GABAPENTIN [Concomitant]
  2. FLUCONAZOLE [Concomitant]
     Indication: PROPHYLAXIS
     Dosage: 50 MG, UNK
     Dates: start: 20110526
  3. COTRIM [Concomitant]
     Indication: PROPHYLAXIS
     Dosage: 480 MG, UNK
     Dates: start: 20110526
  4. ADRIAMYCIN PFS [Concomitant]
  5. VELCADE [Suspect]
     Indication: MULTIPLE MYELOMA
     Dosage: 1.3 MG/M2, UNK
     Route: 042
     Dates: start: 20110923, end: 20111024
  6. ACYCLOVIR [Concomitant]
     Indication: PROPHYLAXIS
     Dosage: 200 MG, UNK
     Dates: start: 20110526
  7. ALLOPURINOL [Concomitant]
     Indication: PROPHYLAXIS
     Dosage: 300 MG, UNK
     Dates: start: 20110526
  8. DEXAMETHASONE [Concomitant]
  9. OXYCONTIN [Concomitant]
     Indication: PAIN
     Dosage: 80 MG, UNK
     Dates: start: 20110616

REACTIONS (2)
  - NEUROPATHY PERIPHERAL [None]
  - MUCOSAL INFLAMMATION [None]
